FAERS Safety Report 9055967 (Version 1)
Quarter: 2013Q1

REPORT INFORMATION
  Report Type: Spontaneous
  Country: US (occurrence: US)
  Receive Date: 20130206
  Receipt Date: 20130206
  Transmission Date: 20140127
  Serious: No
  Sender: FDA-Public Use
  Company Number: US-ALLERGAN-1201694US

PATIENT
  Sex: Female

DRUGS (3)
  1. RESTASIS [Suspect]
     Indication: DRY EYE
     Dosage: 2 GTT, BID
     Route: 047
     Dates: start: 20111201, end: 20111228
  2. SYSTANE ULTRA [Concomitant]
     Indication: DRY EYE
     Dosage: 2 GTT, PRN
     Route: 047
  3. SYSTANE OVERNIGHT RELIEF [Concomitant]
     Indication: DRY EYE
     Dosage: 2 GTT, PRN
     Route: 047

REACTIONS (10)
  - Eyelid exfoliation [Recovering/Resolving]
  - Eyelid pain [Recovered/Resolved]
  - Skin tightness [Recovering/Resolving]
  - Madarosis [Recovering/Resolving]
  - Eyelid disorder [Recovered/Resolved]
  - Eye discharge [Recovered/Resolved]
  - Ocular hyperaemia [Recovered/Resolved]
  - Drug hypersensitivity [Recovering/Resolving]
  - Dry eye [Recovering/Resolving]
  - Eye pruritus [Recovered/Resolved]
